FAERS Safety Report 8214960-4 (Version None)
Quarter: 2012Q1

REPORT INFORMATION
  Report Type: 
  Country: None (occurrence: None)
  Receive Date: 20120316
  Receipt Date: 20120307
  Transmission Date: 20120608
  Serious: Yes (Death, Hospitalization)
  Sender: FDA-Public Use
  Company Number: IN-SANOFI-AVENTIS-2011SA060124

PATIENT
  Age: 80 Year
  Sex: Male
  Weight: 55.9 kg

DRUGS (15)
  1. CABAZITAXEL [Suspect]
     Indication: PROSTATE CANCER METASTATIC
     Route: 042
     Dates: start: 20110908, end: 20110908
  2. METOCLOPRAMIDE [Concomitant]
     Route: 042
  3. ULTRACET [Concomitant]
     Route: 048
  4. VITAMINS WITH MINERALS [Concomitant]
     Route: 048
  5. LACTULOSE [Concomitant]
     Route: 048
  6. RANITIDINE [Concomitant]
     Indication: PREMEDICATION
     Route: 042
  7. DEXAMETHASONE [Concomitant]
     Indication: PREMEDICATION
     Route: 042
  8. GRANISETRON [Concomitant]
     Indication: PREMEDICATION
     Route: 042
  9. CROCIN [Concomitant]
     Route: 048
     Dates: start: 20110909, end: 20110909
  10. ANTISEPTICS [Concomitant]
  11. PREDNISONE TAB [Suspect]
     Indication: PROSTATE CANCER METASTATIC
     Route: 048
  12. CHLORDIAZEPOXIDE HYDROCHLORIDE/CLIDINIUM BROMIDE [Concomitant]
     Indication: ABDOMINAL PAIN
  13. AVIL [Concomitant]
     Route: 042
  14. FILGRASTIM [Concomitant]
     Route: 058
     Dates: start: 20110909, end: 20110909
  15. DOMSTAL [Concomitant]
     Indication: NAUSEA
     Dates: start: 20110909

REACTIONS (6)
  - NEUTROPENIA [None]
  - CARDIOGENIC SHOCK [None]
  - PNEUMONITIS [None]
  - HYPOGLYCAEMIA [None]
  - SEPTIC SHOCK [None]
  - SEPSIS [None]
